FAERS Safety Report 5132850-0 (Version None)
Quarter: 2006Q4

REPORT INFORMATION
  Report Type: 
  Country: None (occurrence: None)
  Receive Date: 20061023
  Receipt Date: 20060929
  Transmission Date: 20070319
  Serious: Yes (Disabling)
  Sender: FDA-Public Use
  Company Number: ES-ELI_LILLY_AND_COMPANY-ES200610000019

PATIENT
  Age: 75 Year
  Sex: Male

DRUGS (3)
  1. CYMBALTA [Suspect]
     Indication: DEPRESSION
     Dosage: 60 MG, UNK
     Route: 048
     Dates: start: 20060601, end: 20060801
  2. SUMIAL [Concomitant]
     Indication: ESSENTIAL TREMOR
     Dosage: 40 MG, 2/D
  3. ATROVENT [Concomitant]
     Indication: RESPIRATORY FAILURE
     Dates: start: 20030101

REACTIONS (4)
  - AGGRESSION [None]
  - APHASIA [None]
  - DISORIENTATION [None]
  - MOOD ALTERED [None]
